FAERS Safety Report 17011520 (Version 1)
Quarter: 2019Q4

REPORT INFORMATION
  Report Type: Spontaneous
  Country: US (occurrence: US)
  Receive Date: 20191108
  Receipt Date: 20191108
  Transmission Date: 20200122
  Serious: No
  Sender: FDA-Public Use
  Company Number: US-NOVOPROD-687142

PATIENT
  Age: 55 Year
  Sex: Female

DRUGS (1)
  1. TRESIBA [Suspect]
     Active Substance: INSULIN DEGLUDEC
     Indication: TYPE 1 DIABETES MELLITUS
     Dosage: 4 IU, BID (4 UNITS TWO TIMES A DAY)
     Route: 058
     Dates: start: 2016

REACTIONS (5)
  - Blood glucose increased [Recovering/Resolving]
  - Insulin resistance [Unknown]
  - Glycosylated haemoglobin increased [Unknown]
  - Subcutaneous drug absorption impaired [Unknown]
  - Inappropriate schedule of product administration [Unknown]
